FAERS Safety Report 5010867-4 (Version None)
Quarter: 2006Q2

REPORT INFORMATION
  Report Type: 
  Country: None (occurrence: None)
  Receive Date: 20060525
  Receipt Date: 20060518
  Transmission Date: 20061013
  Serious: Yes (Hospitalization)
  Sender: FDA-Public Use
  Company Number: JP-JPN-A200601624

PATIENT
  Age: 15 Year
  Sex: Female

DRUGS (10)
  1. PAXIL [Suspect]
     Indication: DEPRESSION
     Dosage: 28U PER DAY
     Route: 048
     Dates: start: 20060514
  2. IMIGRAN [Suspect]
     Indication: DRUG USE FOR UNKNOWN INDICATION
     Dosage: 82U PER DAY
     Route: 048
     Dates: start: 20060514
  3. MYSLEE [Concomitant]
     Route: 048
  4. LENDORMIN [Concomitant]
     Route: 048
  5. LOXONIN [Concomitant]
     Route: 048
  6. LUVOX [Concomitant]
     Route: 048
  7. RELPAX [Concomitant]
     Route: 048
  8. GRANDAXIN [Concomitant]
     Route: 048
  9. ROHYPNOL [Concomitant]
     Route: 048
  10. DEPAS [Concomitant]
     Route: 048

REACTIONS (2)
  - OVERDOSE [None]
  - SUICIDE ATTEMPT [None]
